FAERS Safety Report 7518092-X (Version None)
Quarter: 2011Q2

REPORT INFORMATION
  Report Type: 
  Country: None (occurrence: None)
  Receive Date: 20110523
  Receipt Date: 20110511
  Transmission Date: 20111010
  Serious: Yes (Other)
  Sender: FDA-Public Use
  Company Number: US-1186189

PATIENT
  Sex: Male

DRUGS (12)
  1. BSS [Suspect]
  2. BSS [Suspect]
  3. ALDACTONE [Concomitant]
  4. LASIX [Concomitant]
  5. FOSAMAX [Concomitant]
  6. SIMVASTATIN [Concomitant]
  7. INSULIN [Concomitant]
  8. RIFAXIMIN [Concomitant]
  9. BSS [Suspect]
  10. WARFARIN SODIUM [Concomitant]
  11. BSS [Suspect]
     Indication: VITRECTOMY
     Dosage: INTRAOCULAR
     Route: 031
     Dates: start: 20110511, end: 20110511
  12. PREVACID [Concomitant]

REACTIONS (5)
  - CATARACT [None]
  - POST PROCEDURAL COMPLICATION [None]
  - ENDOPHTHALMITIS [None]
  - PROCEDURAL COMPLICATION [None]
  - BLOOD GLUCOSE INCREASED [None]
